FAERS Safety Report 8574679-7 (Version None)
Quarter: 2012Q3

REPORT INFORMATION
  Report Type: 
  Country: None (occurrence: None)
  Receive Date: 20120807
  Receipt Date: 20120719
  Transmission Date: 20120928
  Serious: No
  Sender: FDA-Public Use
  Company Number: US-009507513-1207USA008632

PATIENT

DRUGS (11)
  1. VICTRELIS [Suspect]
     Dosage: 800 MG, Q8H
     Route: 048
  2. OMEGA-3-ACID ETHYL ESTERS [Concomitant]
  3. PREVACID [Concomitant]
  4. PEGASYS [Suspect]
     Dosage: UNK
  5. MAXI MULTI [Concomitant]
  6. VITAMIN D [Concomitant]
  7. TURMERIC [Concomitant]
  8. METFORMIN HYDROCHLORIDE [Concomitant]
  9. VITAMIN B COMPLEX CAP [Concomitant]
  10. FIBER (UNSPECIFIED) [Concomitant]
  11. REBETOL [Suspect]
     Dosage: UNK

REACTIONS (6)
  - WEIGHT DECREASED [None]
  - INFLUENZA LIKE ILLNESS [None]
  - APPETITE DISORDER [None]
  - DIARRHOEA [None]
  - CONSTIPATION [None]
  - DYSGEUSIA [None]
